FAERS Safety Report 6677475-0 (Version None)
Quarter: 2010Q2

REPORT INFORMATION
  Report Type: 
  Country: None (occurrence: None)
  Receive Date: 20100412
  Receipt Date: 20100401
  Transmission Date: 20101027
  Serious: Yes (Congenital Anomaly)
  Sender: FDA-Public Use
  Company Number: B0633178A

PATIENT

DRUGS (1)
  1. PAXIL [Suspect]
     Indication: PANIC DISORDER

REACTIONS (2)
  - ANENCEPHALY [None]
  - DRUG EXPOSURE DURING PREGNANCY [None]
